FAERS Safety Report 6389124-X (Version None)
Quarter: 2009Q4

REPORT INFORMATION
  Report Type: 
  Country: None (occurrence: None)
  Receive Date: 20091006
  Receipt Date: 20070613
  Transmission Date: 20100525
  Serious: Yes (Other)
  Sender: FDA-Public Use
  Company Number: US-ASTRAZENECA-2006UW24151

PATIENT
  Age: 19282 Day
  Sex: Male
  Weight: 95.3 kg

DRUGS (9)
  1. SEROQUEL [Suspect]
     Indication: DEPRESSION
     Dosage: 25-100 MG
     Route: 048
     Dates: start: 20000713
  2. SEROQUEL [Suspect]
     Indication: HALLUCINATION
     Dosage: 25-100 MG
     Route: 048
     Dates: start: 20000713
  3. ZYPREXA [Concomitant]
     Indication: PSYCHOTIC DISORDER
     Dosage: 5-20 MG
     Route: 048
     Dates: start: 19990223
  4. PROZAC [Concomitant]
     Indication: DEPRESSION
     Dosage: 20-40 MG
     Route: 048
     Dates: start: 19990219
  5. PREVACID [Concomitant]
     Dosage: 15-30 MG
     Dates: start: 19990219
  6. KLONOPIN [Concomitant]
     Dates: start: 19990219
  7. PRILOSEC [Concomitant]
     Indication: GASTROOESOPHAGEAL REFLUX DISEASE
     Dates: start: 19990219
  8. COZAAR [Concomitant]
     Dosage: 50-200 MG
     Route: 048
     Dates: start: 20000616
  9. OXYCONTIN [Concomitant]
     Dosage: 20-40 MG
     Dates: start: 20001207

REACTIONS (4)
  - DIABETES MELLITUS [None]
  - DIABETES MELLITUS INADEQUATE CONTROL [None]
  - NEURALGIA [None]
  - NEUROPATHY PERIPHERAL [None]
